FAERS Safety Report 13435126 (Version 1)
Quarter: 2017Q2

REPORT INFORMATION
  Report Type: Spontaneous
  Country: CN (occurrence: CN)
  Receive Date: 20170412
  Receipt Date: 20170412
  Transmission Date: 20170830
  Serious: Yes (Hospitalization)
  Sender: FDA-Public Use
  Company Number: CN-PFIZER INC-2017154599

PATIENT
  Age: 15 Year
  Sex: Male
  Weight: 46 kg

DRUGS (3)
  1. METHOTREXATE. [Suspect]
     Active Substance: METHOTREXATE
     Indication: LEUKAEMIA
     Dosage: 7.25 G, 1X/DAY
     Route: 041
     Dates: start: 20170126, end: 20170126
  2. SODIUM CHLORIDE. [Concomitant]
     Active Substance: SODIUM CHLORIDE
     Indication: VEHICLE SOLUTION USE
     Dosage: 500 ML, 1X/DAY
     Route: 041
     Dates: start: 20170126, end: 20170126
  3. SHU XING [Concomitant]
     Indication: PROPHYLAXIS
     Dosage: 3 MG, 1X/DAY
     Route: 042
     Dates: start: 20170126, end: 20170126

REACTIONS (2)
  - Renal impairment [Recovering/Resolving]
  - Hiccups [Recovering/Resolving]

NARRATIVE: CASE EVENT DATE: 20170128
